FAERS Safety Report 10606470 (Version 1)
Quarter: 2014Q4

REPORT INFORMATION
  Report Type: Spontaneous
  Country: US (occurrence: US)
  Receive Date: 20141125
  Receipt Date: 20141125
  Transmission Date: 20150529
  Serious: Yes (Other)
  Sender: FDA-Public Use
  Company Number: US-BANPHARM-20143257

PATIENT
  Sex: Female

DRUGS (1)
  1. IBUPROFEN UNKNOWN PRODUCT [Suspect]
     Active Substance: IBUPROFEN
     Dosage: 600 MG, TID,
     Route: 048

REACTIONS (8)
  - Anaphylactic reaction [Recovered/Resolved]
  - Swollen tongue [None]
  - Urticaria [None]
  - Vomiting [None]
  - Dizziness [None]
  - Tachypnoea [None]
  - Hypotension [None]
  - Tachycardia [None]
